FAERS Safety Report 8146334-9 (Version None)
Quarter: 2012Q1

REPORT INFORMATION
  Report Type: 
  Country: None (occurrence: None)
  Receive Date: 20120217
  Receipt Date: 20110829
  Transmission Date: 20120608
  Serious: No
  Sender: FDA-Public Use
  Company Number: US-ABBOTT-11P-163-0850494-00

PATIENT
  Sex: Male
  Weight: 77.18 kg

DRUGS (4)
  1. ASPIRIN [Concomitant]
     Indication: CARDIAC DISORDER
     Dosage: 81MG DAILY
  2. LOVAZA [Concomitant]
     Indication: BLOOD CHOLESTEROL ABNORMAL
  3. SIMCOR [Suspect]
     Indication: BLOOD CHOLESTEROL INCREASED
     Dosage: 500/20 MG DAILY
     Dates: start: 20110825
  4. PLAVIX [Concomitant]
     Indication: CARDIAC DISORDER

REACTIONS (1)
  - DIZZINESS [None]
